FAERS Safety Report 24125160 (Version 1)
Quarter: 2024Q3

REPORT INFORMATION
  Report Type: Report from Study
  Country: TN (occurrence: TN)
  Receive Date: 20240723
  Receipt Date: 20240723
  Transmission Date: 20241017
  Serious: Yes (Hospitalization)
  Sender: ABBVIE
  Company Number: TN-ABBVIE-5846056

PATIENT
  Age: 61 Year
  Sex: Female

DRUGS (4)
  1. HUMIRA [Suspect]
     Active Substance: ADALIMUMAB
     Indication: Crohn^s disease
     Dosage: FORM STRENGTH: 40 MILLIGRAM
     Route: 058
     Dates: start: 202404
  2. HUMIRA [Suspect]
     Active Substance: ADALIMUMAB
     Dosage: FORM STRENGTH: 40 MILLIGRAM, FIRST ADMIN DATE: 2024
     Route: 058
     Dates: end: 20240331
  3. HUMIRA [Suspect]
     Active Substance: ADALIMUMAB
     Dosage: FORM STRENGTH: 40 MILLIGRAM
     Route: 058
     Dates: start: 20160101, end: 20200915
  4. HUMIRA [Suspect]
     Active Substance: ADALIMUMAB
     Dosage: FORM STRENGTH: 40 MILLIGRAM
     Route: 058
     Dates: start: 20210207, end: 20240220

REACTIONS (8)
  - Gastrointestinal inflammation [Recovered/Resolved]
  - Gastrointestinal injury [Recovered/Resolved]
  - Iron deficiency [Recovered/Resolved]
  - Anal haemorrhage [Recovered/Resolved]
  - Dizziness [Recovered/Resolved]
  - Immunodeficiency [Recovered/Resolved]
  - Fatigue [Recovered/Resolved]
  - Hypovitaminosis [Recovering/Resolving]

NARRATIVE: CASE EVENT DATE: 20240331
